FAERS Safety Report 13388592 (Version 1)
Quarter: 2017Q1

REPORT INFORMATION
  Report Type: Spontaneous
  Country: IT (occurrence: IT)
  Receive Date: 20170330
  Receipt Date: 20170330
  Transmission Date: 20170429
  Serious: Yes (Hospitalization)
  Sender: FDA-Public Use
  Company Number: IT-INGENUS PHARMACEUTICALS NJ, LLC-ING201703-000142

PATIENT
  Age: 57 Year
  Sex: Female

DRUGS (1)
  1. PROBENECID AND COLCHICINE [Suspect]
     Active Substance: COLCHICINE\PROBENECID
     Indication: GOUTY ARTHRITIS

REACTIONS (10)
  - Intentional overdose [Unknown]
  - Haemorrhage [Unknown]
  - Myopathy [Recovering/Resolving]
  - Transaminases increased [Recovered/Resolved]
  - Diarrhoea [Unknown]
  - Neuromyopathy [Recovering/Resolving]
  - Neuromuscular toxicity [Unknown]
  - Microvillous inclusion disease [Unknown]
  - Weight decreased [Unknown]
  - Toxicity to various agents [Unknown]
